FAERS Safety Report 17850898 (Version 25)
Quarter: 2025Q3

REPORT INFORMATION
  Report Type: Report from Study
  Country: US (occurrence: US)
  Receive Date: 20200602
  Receipt Date: 20250806
  Transmission Date: 20251021
  Serious: Yes (Other)
  Sender: TAKEDA
  Company Number: US-SHIRE-US202018053

PATIENT
  Age: 54 Year
  Sex: Female
  Weight: 145 kg

DRUGS (33)
  1. HUMAN IMMUNOGLOBULIN G [Suspect]
     Active Substance: HUMAN IMMUNOGLOBULIN G
     Indication: Immune system disorder
     Dosage: 15 GRAM, Q2WEEKS
  2. HUMAN IMMUNOGLOBULIN G [Suspect]
     Active Substance: HUMAN IMMUNOGLOBULIN G
     Indication: Dwarfism
     Dosage: 15 GRAM, Q2WEEKS
     Dates: start: 20200317
  3. HUMAN IMMUNOGLOBULIN G [Suspect]
     Active Substance: HUMAN IMMUNOGLOBULIN G
     Indication: Hypopituitarism
  4. HUMAN IMMUNOGLOBULIN G [Suspect]
     Active Substance: HUMAN IMMUNOGLOBULIN G
     Indication: Hypergammaglobulinaemia
  5. ENBREL [Suspect]
     Active Substance: ETANERCEPT
     Indication: Product used for unknown indication
  6. ACETAMINOPHEN [Concomitant]
     Active Substance: ACETAMINOPHEN
  7. CYMBALTA [Concomitant]
     Active Substance: DULOXETINE HYDROCHLORIDE
  8. METOPROLOL SUCCINATE [Concomitant]
     Active Substance: METOPROLOL SUCCINATE
  9. NABUMETONE [Concomitant]
     Active Substance: NABUMETONE
  10. METFORMIN HYDROCHLORIDE [Concomitant]
     Active Substance: METFORMIN HYDROCHLORIDE
  11. PLAQUENIL [Concomitant]
     Active Substance: HYDROXYCHLOROQUINE SULFATE
  12. ZYRTEC [Concomitant]
     Active Substance: CETIRIZINE HYDROCHLORIDE
  13. VITAMIN D3 [Concomitant]
     Active Substance: CHOLECALCIFEROL
  14. PREDNISOLONE ACETATE [Concomitant]
     Active Substance: PREDNISOLONE ACETATE
  15. SYNTHROID [Concomitant]
     Active Substance: LEVOTHYROXINE SODIUM
  16. LIDOCAINE [Concomitant]
     Active Substance: LIDOCAINE
  17. ALDACTONE [Concomitant]
     Active Substance: SPIRONOLACTONE
  18. SAIZEN [Concomitant]
     Active Substance: SOMATROPIN
  19. CYTOMEL [Concomitant]
     Active Substance: LIOTHYRONINE SODIUM
  20. OTEZLA [Concomitant]
     Active Substance: APREMILAST
  21. ACETAZOLAMIDE [Concomitant]
     Active Substance: ACETAZOLAMIDE
  22. DIPHENHYDRAMINE [Concomitant]
     Active Substance: DIPHENHYDRAMINE
  23. METHOTREXATE [Concomitant]
     Active Substance: METHOTREXATE
  24. LEVOTHYROXINE SODIUM [Concomitant]
     Active Substance: LEVOTHYROXINE SODIUM
  25. NORVASC [Concomitant]
     Active Substance: AMLODIPINE BESYLATE
  26. FUROSEMIDE [Concomitant]
     Active Substance: FUROSEMIDE
  27. GABAPENTIN [Concomitant]
     Active Substance: GABAPENTIN
  28. OMEPRAZOLE [Concomitant]
     Active Substance: OMEPRAZOLE
  29. METFORMIN [Concomitant]
     Active Substance: METFORMIN HYDROCHLORIDE
  30. EPINEPHRINE [Concomitant]
     Active Substance: EPINEPHRINE
  31. LEVOTHYROXINE [Concomitant]
     Active Substance: LEVOTHYROXINE
  32. Lmx [Concomitant]
  33. DIPHENHYDRAMINE HYDROCHLORIDE [Concomitant]
     Active Substance: DIPHENHYDRAMINE HYDROCHLORIDE

REACTIONS (22)
  - Lyme disease [Unknown]
  - Mastitis [Unknown]
  - Pituitary tumour [Unknown]
  - Oesophageal infection [Unknown]
  - Psoriasis [Unknown]
  - Herpes zoster [Unknown]
  - Skin infection [Unknown]
  - Animal bite [Unknown]
  - Infection [Unknown]
  - Ear infection [Unknown]
  - Localised infection [Unknown]
  - Cellulitis [Unknown]
  - COVID-19 [Unknown]
  - Arthropod bite [Unknown]
  - Product dose omission issue [Unknown]
  - Inappropriate schedule of product administration [Unknown]
  - Sinusitis [Unknown]
  - Influenza [Unknown]
  - Injection site swelling [Unknown]
  - Erythema [Recovered/Resolved]
  - Injection site erythema [Unknown]
  - Infusion site swelling [Unknown]

NARRATIVE: CASE EVENT DATE: 20210707
